FAERS Safety Report 7629069-8 (Version None)
Quarter: 2011Q3

REPORT INFORMATION
  Report Type: 
  Country: None (occurrence: None)
  Receive Date: 20110722
  Receipt Date: 20110722
  Transmission Date: 20111222
  Serious: Yes (Hospitalization)
  Sender: FDA-Public Use
  Company Number: None

PATIENT
  Age: 49 Year
  Sex: Male
  Weight: 81.646 kg

DRUGS (1)
  1. SANSERT [Suspect]
     Indication: MIGRAINE
     Dosage: SEE MEDICAL RECORDS

REACTIONS (10)
  - ABDOMINAL PAIN UPPER [None]
  - URETERIC OBSTRUCTION [None]
  - PYREXIA [None]
  - BLOOD CREATINE INCREASED [None]
  - IATROGENIC INJURY [None]
  - MUSCLE SPASMS [None]
  - RETROPERITONEAL FIBROSIS [None]
  - PHYSICAL ASSAULT [None]
  - RENAL DISORDER [None]
  - DEEP VEIN THROMBOSIS [None]
